FAERS Safety Report 13594874 (Version 1)
Quarter: 2017Q2

REPORT INFORMATION
  Report Type: Report from Study
  Country: US (occurrence: US)
  Receive Date: 20170530
  Receipt Date: 20170530
  Transmission Date: 20170830
  Serious: Yes (Other)
  Sender: FDA-Public Use
  Company Number: US-BIOGEN-2017BI00410281

PATIENT
  Age: 63 Year
  Sex: Female

DRUGS (1)
  1. TECFIDERA [Suspect]
     Active Substance: DIMETHYL FUMARATE
     Indication: MULTIPLE SCLEROSIS
     Dosage: MAINTENANCE DOSE
     Route: 048
     Dates: start: 20170213

REACTIONS (9)
  - Nausea [Unknown]
  - Abdominal discomfort [Unknown]
  - Seizure [Unknown]
  - Asthenia [Unknown]
  - Chromaturia [Unknown]
  - Hemiparaesthesia [Unknown]
  - Dehydration [Unknown]
  - Poor venous access [Unknown]
  - Visual impairment [Unknown]

NARRATIVE: CASE EVENT DATE: 201704
